FAERS Safety Report 9948654 (Version 2)
Quarter: 2015Q4

REPORT INFORMATION
  Report Type: Report from Study
  Country: US (occurrence: US)
  Receive Date: 20140304
  Receipt Date: 20151001
  Transmission Date: 20160305
  Serious: Yes (Other)
  Sender: FDA-Public Use
  Company Number: US-ROCHE-1336300

PATIENT
  Age: 49 Year
  Sex: Male

DRUGS (24)
  1. CARVEDILOL. [Concomitant]
     Active Substance: CARVEDILOL
     Route: 048
  2. ACUVAIL [Concomitant]
     Active Substance: KETOROLAC TROMETHAMINE
  3. LOVASTATIN. [Concomitant]
     Active Substance: LOVASTATIN
     Route: 048
  4. AVASTIN [Suspect]
     Active Substance: BEVACIZUMAB
     Indication: DIABETIC RETINOPATHY
  5. BETADINE [Concomitant]
     Active Substance: POVIDONE-IODINE
     Route: 065
  6. AVASTIN [Suspect]
     Active Substance: BEVACIZUMAB
     Indication: MACULAR OEDEMA
  7. AVASTIN [Suspect]
     Active Substance: BEVACIZUMAB
     Indication: TYPE 1 DIABETES MELLITUS
  8. METFORMIN HYDROCHLORIDE. [Concomitant]
     Active Substance: METFORMIN HYDROCHLORIDE
     Route: 048
  9. LUCENTIS [Suspect]
     Active Substance: RANIBIZUMAB
     Indication: TYPE 1 DIABETES MELLITUS
  10. BROMDAY [Concomitant]
     Active Substance: BROMFENAC SODIUM
     Dosage: 0.09% SOLN ONCE DAILY PRN FOR PAIN
     Route: 047
  11. FLUOXETINE HCL [Concomitant]
     Active Substance: FLUOXETINE HYDROCHLORIDE
  12. LUCENTIS [Suspect]
     Active Substance: RANIBIZUMAB
     Indication: RETINAL OEDEMA
     Dosage: OU
     Route: 050
     Dates: start: 20110207
  13. AVASTIN [Suspect]
     Active Substance: BEVACIZUMAB
     Indication: RETINAL OEDEMA
     Dosage: OS
     Route: 050
  14. LEVEMIR [Concomitant]
     Active Substance: INSULIN DETEMIR
     Dosage: 100 UNIT/ML SOLUTION
     Route: 065
  15. OCUFEN [Concomitant]
     Active Substance: FLURBIPROFEN SODIUM
     Dosage: 1 GTT QID IN THE OPERATIVE EYE PRN DISCOMFORT
     Route: 047
  16. HUMAN INSULIN [Concomitant]
     Active Substance: INSULIN HUMAN
  17. LUCENTIS [Suspect]
     Active Substance: RANIBIZUMAB
     Indication: DIABETIC RETINAL OEDEMA
  18. LUCENTIS [Suspect]
     Active Substance: RANIBIZUMAB
     Indication: MACULAR OEDEMA
  19. PROPARACAINE [Concomitant]
     Active Substance: PROPARACAINE
  20. LUCENTIS [Suspect]
     Active Substance: RANIBIZUMAB
     Indication: DIABETIC RETINOPATHY
     Route: 050
  21. AVASTIN [Suspect]
     Active Substance: BEVACIZUMAB
     Indication: CATARACT
  22. CLONIDINE HCL [Concomitant]
     Active Substance: CLONIDINE HYDROCHLORIDE
     Route: 048
  23. LUCENTIS [Suspect]
     Active Substance: RANIBIZUMAB
     Indication: CATARACT
  24. AVASTIN [Suspect]
     Active Substance: BEVACIZUMAB
     Indication: DIABETIC RETINAL OEDEMA

REACTIONS (9)
  - Blindness [Unknown]
  - Basal cell carcinoma [Unknown]
  - Cataract [Unknown]
  - Vitreous haemorrhage [Recovered/Resolved]
  - Blood pressure abnormal [Unknown]
  - Eye movement disorder [Unknown]
  - Impaired healing [Recovering/Resolving]
  - Pupil fixed [Unknown]
  - Eye oedema [Recovering/Resolving]

NARRATIVE: CASE EVENT DATE: 20130208
